FAERS Safety Report 24546666 (Version 2)
Quarter: 2024Q4

REPORT INFORMATION
  Report Type: Spontaneous
  Country: US (occurrence: US)
  Receive Date: 20241024
  Receipt Date: 20241125
  Transmission Date: 20250114
  Serious: Yes (Other)
  Sender: MERCK
  Company Number: US-009507513-2410USA006876

PATIENT
  Sex: Female

DRUGS (4)
  1. KEYTRUDA [Suspect]
     Active Substance: PEMBROLIZUMAB
     Indication: Lung carcinoma cell type unspecified stage IV
     Dosage: 200 MILLIGRAM, Q3W
     Route: 042
     Dates: start: 201807, end: 202007
  2. KEYTRUDA [Suspect]
     Active Substance: PEMBROLIZUMAB
     Dosage: 200 MILLIGRAM, Q3W
     Route: 042
     Dates: start: 202211, end: 202310
  3. SPIRIVA [Concomitant]
     Active Substance: TIOTROPIUM BROMIDE MONOHYDRATE
  4. ASPIRIN [Concomitant]
     Active Substance: ASPIRIN

REACTIONS (5)
  - Bone cancer [Unknown]
  - Hypothyroidism [Recovered/Resolved]
  - Neuropathy peripheral [Recovered/Resolved]
  - Lung carcinoma cell type unspecified recurrent [Unknown]
  - Lung carcinoma cell type unspecified recurrent [Recovered/Resolved]
